FAERS Safety Report 7479166-5 (Version None)
Quarter: 2011Q2

REPORT INFORMATION
  Report Type: 
  Country: None (occurrence: None)
  Receive Date: 20110513
  Receipt Date: 20110511
  Transmission Date: 20111010
  Serious: Yes (Hospitalization)
  Sender: FDA-Public Use
  Company Number: IT-ABBOTT-11P-083-0723236-00

PATIENT
  Sex: Female

DRUGS (3)
  1. CLARITHROMYCIN [Suspect]
     Indication: SCARLET FEVER
     Route: 048
     Dates: start: 20110406, end: 20110411
  2. ACETAMINOPHEN [Suspect]
     Indication: PYREXIA
     Dosage: 60ML DAILY, 120MG/5ML
     Route: 048
     Dates: start: 20110408, end: 20110412
  3. TACHIPIRINA [Concomitant]
     Indication: PRODUCT USED FOR UNKNOWN INDICATION

REACTIONS (3)
  - CONJUNCTIVAL HYPERAEMIA [None]
  - SKIN EXFOLIATION [None]
  - ACUTE GENERALISED EXANTHEMATOUS PUSTULOSIS [None]
